FAERS Safety Report 5729785-9 (Version None)
Quarter: 2008Q2

REPORT INFORMATION
  Report Type: 
  Country: None (occurrence: None)
  Receive Date: 20080501
  Receipt Date: 20080411
  Transmission Date: 20081010
  Serious: Yes (Other)
  Sender: FDA-Public Use
  Company Number: DE200804003314

PATIENT
  Age: 70 Year
  Sex: Male

DRUGS (3)
  1. ZYPREXA [Suspect]
     Dosage: 10 MG, DAILY (1/D), ORAL
     Route: 048
     Dates: start: 20050802
  2. CYMBALTA [Suspect]
     Dosage: 60 MG, DAILY (1/D), ORAL
     Route: 048
     Dates: start: 20050802, end: 20050809
  3. TEGRETOL [Concomitant]

REACTIONS (2)
  - HYPERTENSION [None]
  - SYNCOPE [None]
